FAERS Safety Report 7366059-7 (Version None)
Quarter: 2011Q1

REPORT INFORMATION
  Report Type: 
  Country: None (occurrence: None)
  Receive Date: 20110322
  Receipt Date: 20110311
  Transmission Date: 20110831
  Serious: Yes (Death, Hospitalization, Other)
  Sender: FDA-Public Use
  Company Number: US-BAXTER-2008BH000814

PATIENT
  Age: 41 Year
  Sex: Male
  Weight: 63 kg

DRUGS (24)
  1. HEPARIN SODIUM INJECTION [Suspect]
     Indication: PROPHYLAXIS
     Route: 033
     Dates: start: 20080116
  2. HEPARIN SODIUM INJECTION [Suspect]
     Route: 042
     Dates: start: 20080120, end: 20080122
  3. HEPARIN SODIUM INJECTION [Suspect]
     Indication: PERITONEAL DIALYSIS
     Route: 033
     Dates: start: 20080116
  4. HEPARIN SODIUM INJECTION [Suspect]
     Route: 042
     Dates: start: 20080120, end: 20080122
  5. HEPARIN SODIUM INJECTION [Suspect]
     Route: 065
     Dates: start: 20080222, end: 20080223
  6. CLONIDINE [Concomitant]
     Indication: HYPERTENSION
     Route: 048
     Dates: start: 19970101
  7. PROTONIX [Concomitant]
     Indication: GASTRIC DISORDER
     Route: 048
     Dates: start: 20080120, end: 20080128
  8. FLUCONAZOLE [Concomitant]
     Indication: NAUSEA
     Route: 048
     Dates: start: 20080120, end: 20080128
  9. PROMETHAZINE [Concomitant]
     Indication: NAUSEA
     Route: 048
     Dates: start: 20080120
  10. NEPHROCAPS [Concomitant]
     Indication: RENAL FAILURE
     Route: 048
     Dates: start: 19970101
  11. MORPHINE [Concomitant]
     Indication: PRODUCT USED FOR UNKNOWN INDICATION
     Route: 065
  12. ANTIBIOTICS [Concomitant]
     Indication: PRODUCT USED FOR UNKNOWN INDICATION
     Route: 065
  13. HEPARIN SODIUM INJECTION [Suspect]
     Route: 033
     Dates: start: 20080115, end: 20080115
  14. CLONIDINE [Concomitant]
     Indication: PRODUCT USED FOR UNKNOWN INDICATION
     Route: 065
  15. ASPIRIN [Concomitant]
     Indication: PRODUCT USED FOR UNKNOWN INDICATION
     Route: 065
  16. ZOFRAN [Concomitant]
     Indication: PRODUCT USED FOR UNKNOWN INDICATION
     Route: 065
  17. K-DUR [Concomitant]
     Indication: MINERAL SUPPLEMENTATION
     Dosage: DOSE UNIT:UNKNOWN
     Route: 048
     Dates: start: 19970101
  18. LORTAB [Concomitant]
     Indication: PRODUCT USED FOR UNKNOWN INDICATION
     Route: 065
  19. CORTICOSTEROIDS [Concomitant]
     Indication: PRODUCT USED FOR UNKNOWN INDICATION
     Route: 065
  20. IRON [Concomitant]
     Indication: PRODUCT USED FOR UNKNOWN INDICATION
     Route: 065
  21. HEPARIN SODIUM INJECTION [Suspect]
     Route: 033
     Dates: start: 20080115, end: 20080115
  22. HEPARIN SODIUM INJECTION [Suspect]
     Route: 065
     Dates: start: 20080222, end: 20080223
  23. QUINAPRIL [Concomitant]
     Indication: PRODUCT USED FOR UNKNOWN INDICATION
     Route: 065
  24. PHOSLO [Concomitant]
     Indication: PRODUCT USED FOR UNKNOWN INDICATION
     Route: 065

REACTIONS (21)
  - DYSPNOEA [None]
  - THROMBOCYTOPENIA [None]
  - INTESTINAL PERFORATION [None]
  - ABDOMINAL PAIN [None]
  - TESTICULAR PAIN [None]
  - HYPOVOLAEMIA [None]
  - SEPSIS [None]
  - SYNCOPE [None]
  - NAUSEA [None]
  - VOMITING [None]
  - DIARRHOEA [None]
  - HYPOALBUMINAEMIA [None]
  - BLOOD PRESSURE INCREASED [None]
  - ANAEMIA [None]
  - RENAL FAILURE CHRONIC [None]
  - MALNUTRITION [None]
  - HYPOGLYCAEMIA [None]
  - INFUSION SITE INFECTION [None]
  - DYSPEPSIA [None]
  - PERITONITIS BACTERIAL [None]
  - HYPOTENSION [None]
